FAERS Safety Report 5228052-X (Version None)
Quarter: 2007Q1

REPORT INFORMATION
  Report Type: 
  Country: None (occurrence: None)
  Receive Date: 20061201
  Receipt Date: 20061026
  Transmission Date: 20070707
  Serious: Yes (Other)
  Sender: FDA-Public Use
  Company Number: US200610002082

PATIENT
  Age: 65 Year
  Sex: Female

DRUGS (7)
  1. ALIMTA [Suspect]
     Indication: LUNG NEOPLASM MALIGNANT
     Dosage: 80 MG
     Dates: start: 20051101
  2. ALIMTA [Suspect]
     Indication: LUNG NEOPLASM MALIGNANT
     Dosage: 80 MG
     Dates: start: 20060101
  3. ALIMTA [Suspect]
     Indication: LUNG NEOPLASM MALIGNANT
     Dosage: 80 MG
     Dates: start: 20061010
  4. CISPLATIN [Concomitant]
  5. VITAMIN B12 [Concomitant]
  6. FOLIC ACID [Concomitant]
  7. DECADRON [Concomitant]

REACTIONS (3)
  - BLOOD PRESSURE INCREASED [None]
  - CHEST DISCOMFORT [None]
  - MALIGNANT NEOPLASM PROGRESSION [None]
